FAERS Safety Report 22136273 (Version 2)
Quarter: 2023Q2

REPORT INFORMATION
  Report Type: Spontaneous
  Country: FR (occurrence: FR)
  Receive Date: 20230324
  Receipt Date: 20230404
  Transmission Date: 20230721
  Serious: Yes (Disabling, Other)
  Sender: FDA-Public Use
  Company Number: FR-BAYER-2023A035963

PATIENT
  Age: 29 Year
  Sex: Female

DRUGS (1)
  1. CIPROFLOXACIN [Suspect]
     Active Substance: CIPROFLOXACIN

REACTIONS (18)
  - Bipolar disorder [None]
  - Mental impairment [None]
  - Amnesia [None]
  - Tinnitus [None]
  - Vision blurred [None]
  - Haematochezia [None]
  - Proctalgia [None]
  - Dyspepsia [None]
  - Gastrointestinal pain [None]
  - Vomiting [None]
  - Photophobia [None]
  - Hyperacusis [None]
  - Fatigue [None]
  - Feeling abnormal [None]
  - Bone pain [None]
  - Pain of skin [None]
  - Acne [None]
  - Headache [None]
